FAERS Safety Report 17901183 (Version 1)
Quarter: 2020Q2

REPORT INFORMATION
  Report Type: Spontaneous
  Country: CA (occurrence: CA)
  Receive Date: 20200616
  Receipt Date: 20200616
  Transmission Date: 20200714
  Serious: Yes (Hospitalization, Other)
  Sender: FDA-Public Use
  Company Number: CA-PFIZER INC-2020232431

PATIENT
  Age: 69 Year
  Sex: Female

DRUGS (3)
  1. NUCALA [Suspect]
     Active Substance: MEPOLIZUMAB
     Indication: ASTHMA
     Dosage: 100 MG
     Route: 042
  2. SALBUTAMOL [Suspect]
     Active Substance: ALBUTEROL
     Dosage: UNK
     Route: 065
  3. MORPHINE SULFATE. [Suspect]
     Active Substance: MORPHINE SULFATE
     Dosage: UNK
     Route: 065

REACTIONS (6)
  - Dyspnoea [Recovering/Resolving]
  - Nasopharyngitis [Recovering/Resolving]
  - Sleep disorder due to a general medical condition [Recovering/Resolving]
  - Loss of personal independence in daily activities [Recovering/Resolving]
  - Mobility decreased [Recovering/Resolving]
  - Asthma [Recovering/Resolving]
